FAERS Safety Report 9008410 (Version 1)
Quarter: 2013Q1

REPORT INFORMATION
  Report Type: Spontaneous
  Country: EG (occurrence: US)
  Receive Date: 20130111
  Receipt Date: 20130111
  Transmission Date: 20140127
  Serious: No
  Sender: FDA-Public Use
  Company Number: EG-BAYER-2012-136292

PATIENT
  Sex: Male

DRUGS (1)
  1. STIVARGA [Suspect]

REACTIONS (3)
  - Pain [None]
  - Chromaturia [None]
  - Faeces discoloured [None]
